FAERS Safety Report 8500839-7 (Version None)
Quarter: 2012Q3

REPORT INFORMATION
  Report Type: 
  Country: None (occurrence: None)
  Receive Date: 20120710
  Receipt Date: 20120627
  Transmission Date: 20120928
  Serious: No
  Sender: FDA-Public Use
  Company Number: US-ASTRAZENECA-2012SE43960

PATIENT
  Sex: Male

DRUGS (4)
  1. SYMBICORT [Suspect]
     Dosage: 160/4.5 MCGS TWO PUFFS TWO TIMES A DAY
     Route: 055
     Dates: start: 20120401
  2. SYMBICORT [Suspect]
     Dosage: 160/4.5 MCGS TWO PUFFS DAILY
     Route: 055
  3. SYMBICORT [Suspect]
     Dosage: 160/4.5 MCGS TWO PUFFS DAILY
     Route: 055
  4. SYMBICORT [Suspect]
     Dosage: 160/4.5 MCGS TWO PUFFS TWO TIMES A DAY
     Route: 055

REACTIONS (2)
  - DYSPNOEA [None]
  - DRUG DOSE OMISSION [None]
